FAERS Safety Report 17334049 (Version 2)
Quarter: 2020Q1

REPORT INFORMATION
  Report Type: Spontaneous
  Country: US (occurrence: US)
  Receive Date: 20200128
  Receipt Date: 20200219
  Transmission Date: 20200409
  Serious: No
  Sender: FDA-Public Use
  Company Number: US-PFIZER INC-2020038091

PATIENT
  Age: 71 Year
  Sex: Female

DRUGS (2)
  1. IBRANCE [Suspect]
     Active Substance: PALBOCICLIB
     Indication: BREAST CANCER
     Dosage: 125 MG, CYCLIC(TAKE 1 CAPSULE BY MOUTH ONCE A DAY FOR 21 DAYS ON, 7 DAYS OFF)
     Route: 048
     Dates: start: 20200123
  2. LETROZOLE. [Concomitant]
     Active Substance: LETROZOLE
     Dosage: UNK UNK, DAILY

REACTIONS (2)
  - Anxiety [Unknown]
  - Alopecia [Unknown]

NARRATIVE: CASE EVENT DATE: 20200124
